FAERS Safety Report 24440693 (Version 2)
Quarter: 2024Q4

REPORT INFORMATION
  Report Type: Report from Study
  Country: BR (occurrence: BR)
  Receive Date: 20241016
  Receipt Date: 20241017
  Transmission Date: 20250114
  Serious: No
  Sender: ROCHE
  Company Number: BR-ROCHE-3299532

PATIENT
  Age: 20 Year
  Sex: Male
  Weight: 54.2 kg

DRUGS (5)
  1. EMICIZUMAB [Suspect]
     Active Substance: EMICIZUMAB
     Indication: Haemophilia
     Route: 058
     Dates: start: 20211027, end: 20211117
  2. EMICIZUMAB [Suspect]
     Active Substance: EMICIZUMAB
     Route: 058
     Dates: start: 20211124, end: 20220209
  3. EMICIZUMAB [Suspect]
     Active Substance: EMICIZUMAB
     Dosage: SUBSEQUENT DOSES WAS GIVEN ON 06/JUL/2022, 20/JUL/2022, 03/AUG/2022, 17/AUG/2022, 31/AUG/2022, 14/SE
     Route: 058
     Dates: start: 20220216
  4. ANTIHEMOPHILIC FACTOR HUMAN [Suspect]
     Active Substance: ANTIHEMOPHILIC FACTOR HUMAN
     Indication: Haemophilia
     Route: 042
     Dates: start: 20140106, end: 20150203
  5. COAGULATION FACTOR VIIA RECOMBINANT HUMAN [Concomitant]
     Active Substance: COAGULATION FACTOR VIIA RECOMBINANT HUMAN
     Dates: start: 20220828

REACTIONS (1)
  - Headache [Recovered/Resolved]

NARRATIVE: CASE EVENT DATE: 20230123
